FAERS Safety Report 22709630 (Version 13)
Quarter: 2024Q3

REPORT INFORMATION
  Report Type: Report from Study
  Country: PT (occurrence: PT)
  Receive Date: 20230717
  Receipt Date: 20240701
  Transmission Date: 20241016
  Serious: Yes (Other)
  Sender: ABBVIE
  Company Number: PT-ABBVIE-4729416

PATIENT
  Sex: Male

DRUGS (22)
  1. CARBIDOPA\LEVODOPA [Suspect]
     Active Substance: CARBIDOPA\LEVODOPA
     Indication: Parkinson^s disease
     Dosage: 20 MG + 5 MG/FREQUENCY TEXT: MORN:7ML;MAINT:3.2ML/H;EXTRA:1ML
     Route: 050
     Dates: start: 20220511
  2. CARBIDOPA\LEVODOPA [Suspect]
     Active Substance: CARBIDOPA\LEVODOPA
     Dosage: 20 MG + 5 MG/FREQUENCY TEXT: MOR:6;MA:4.5(DAY);MA:2.2(NIGHT);EXT:3
     Route: 050
     Dates: start: 2024
  3. CARBIDOPA\LEVODOPA [Suspect]
     Active Substance: CARBIDOPA\LEVODOPA
     Dosage: 20 MG + 5 MG/FREQUENCY TEXT: MO:10.2CC;MAIN:4.5TO5.5CC/H;EXTRA:3CC
     Route: 050
     Dates: start: 2023, end: 2023
  4. CARBIDOPA\LEVODOPA [Suspect]
     Active Substance: CARBIDOPA\LEVODOPA
     Dosage: 20 MG + 5 MG/FREQUENCY TEXT: MORN:10.2CC;MAINT:4.5CC/H;EXTRA:3CC
     Route: 050
     Dates: start: 2023, end: 2024
  5. CARBIDOPA\LEVODOPA [Suspect]
     Active Substance: CARBIDOPA\LEVODOPA
     Route: 050
  6. CARBIDOPA\LEVODOPA [Suspect]
     Active Substance: CARBIDOPA\LEVODOPA
     Route: 050
  7. CARBIDOPA\LEVODOPA [Suspect]
     Active Substance: CARBIDOPA\LEVODOPA
     Route: 050
  8. AMANTADINE HYDROCHLORIDE [Concomitant]
     Active Substance: AMANTADINE HYDROCHLORIDE
     Indication: Product used for unknown indication
     Dosage: FORM STRENGTH: 100 MG
     Dates: start: 2023
  9. CLONAZEPAM [Concomitant]
     Active Substance: CLONAZEPAM
     Indication: Product used for unknown indication
     Dosage: 1 TABLET?FORM STRENGTH: 0.5MG?BEFORE DUODOPA
     Route: 048
  10. CIPRALEX [Concomitant]
     Active Substance: ESCITALOPRAM OXALATE
     Indication: Depressed mood
     Dosage: FREQUENCY TEXT: AT NIGHT
     Dates: start: 202304
  11. CIPRALEX [Concomitant]
     Active Substance: ESCITALOPRAM OXALATE
     Indication: Depressed mood
     Dosage: FREQUENCY TEXT: DURING THE DAY
     Dates: start: 2022, end: 202304
  12. RABEPRAZOLE [Concomitant]
     Active Substance: RABEPRAZOLE
     Indication: Ulcer
     Dosage: 1 TABLET/FORM STRENGTH: 20 MG
     Route: 065
     Dates: start: 202310
  13. BENSERAZIDE HYDROCHLORIDE\LEVODOPA [Concomitant]
     Active Substance: BENSERAZIDE HYDROCHLORIDE\LEVODOPA
     Indication: Product used for unknown indication
     Dosage: START DATE TEXT: BEFORE DUODOPA/AT BEDTIME
  14. AMOXICILLIN [Concomitant]
     Active Substance: AMOXICILLIN
     Indication: Product used for unknown indication
     Dosage: FORM STRENGTH: 1000 MG
     Dates: start: 202308, end: 2023
  15. MIRTAZAPINE [Concomitant]
     Active Substance: MIRTAZAPINE
     Indication: Depressed mood
     Dosage: 0.5 TABLET/THERAPY END DATE:2023/FORM STRENGTH: 30 MG
     Route: 048
     Dates: start: 202304
  16. MIRTAZAPINE [Concomitant]
     Active Substance: MIRTAZAPINE
     Indication: Depressed mood
     Dosage: LAST ADMIN DATE: 2023/FORM STRENGTH: 30 MG
     Route: 048
     Dates: start: 202308
  17. MIRTAZAPINE [Concomitant]
     Active Substance: MIRTAZAPINE
     Indication: Depressed mood
     Dosage: FORM STRENGTH: 30 MG
     Route: 048
     Dates: start: 2023, end: 2023
  18. Folic acid plus vitamin b12 [Concomitant]
     Indication: Product used for unknown indication
     Dosage: START DATE TEXT: UPON DUODOPA START
  19. IRON [Concomitant]
     Active Substance: IRON
     Indication: Product used for unknown indication
     Dates: start: 2023
  20. RIVOTRIL [Concomitant]
     Active Substance: CLONAZEPAM
     Indication: Product used for unknown indication
     Dosage: FORM STRENGTH: 0.5 MILLIGRAM?START DATE BEFORE DUODOPA
  21. XADAGO [Concomitant]
     Active Substance: SAFINAMIDE MESYLATE
     Indication: Gait disturbance
     Dates: start: 202308
  22. ITRACONAZOLE [Concomitant]
     Active Substance: ITRACONAZOLE
     Indication: Bronchopulmonary aspergillosis
     Dosage: 3 TABLET/FORM STRENGTH: 100 MG/FREQUENCY TEXT: 2 TAB IN THE MORNING + 1 TAB AT NIGHT
     Dates: start: 202310

REACTIONS (19)
  - Bronchopulmonary aspergillosis [Not Recovered/Not Resolved]
  - Red blood cell sedimentation rate increased [Recovered/Resolved]
  - Ulcer [Not Recovered/Not Resolved]
  - Prostate cancer [Not Recovered/Not Resolved]
  - Intentional product misuse [Unknown]
  - Depressed mood [Not Recovered/Not Resolved]
  - Laryngeal ulceration [Not Recovered/Not Resolved]
  - Cough [Recovered/Resolved]
  - Weight decreased [Recovered/Resolved]
  - Dyskinesia [Recovered/Resolved]
  - Somnolence [Recovered/Resolved]
  - Anaemia [Recovering/Resolving]
  - Haemoptysis [Recovered/Resolved]
  - Weight decreased [Not Recovered/Not Resolved]
  - Decreased appetite [Recovered/Resolved]
  - Haematochezia [Recovered/Resolved]
  - Prostatic specific antigen increased [Not Recovered/Not Resolved]
  - Bronchitis bacterial [Recovered/Resolved]
  - Prostatic specific antigen increased [Unknown]

NARRATIVE: CASE EVENT DATE: 20220101
